FAERS Safety Report 9415689 (Version 1)
Quarter: 2013Q3

REPORT INFORMATION
  Report Type: Spontaneous
  Country: US (occurrence: US)
  Receive Date: 20130723
  Receipt Date: 20130723
  Transmission Date: 20140515
  Serious: No
  Sender: FDA-Public Use
  Company Number: US-GALDERMA-US-GDP-12413464

PATIENT
  Age: 47 Year
  Sex: Female
  Weight: 72 kg

DRUGS (4)
  1. ORACEA [Suspect]
     Indication: ROSACEA
     Route: 048
     Dates: start: 201106, end: 201109
  2. ORACEA [Suspect]
     Route: 048
     Dates: start: 201109, end: 201109
  3. CALCIUM [Concomitant]
     Indication: MINERAL SUPPLEMENTATION
     Route: 048
  4. LOESTRIN [Concomitant]
     Indication: CONTRACEPTION

REACTIONS (1)
  - Nausea [Not Recovered/Not Resolved]
